FAERS Safety Report 8277679-X (Version None)
Quarter: 2012Q2

REPORT INFORMATION
  Report Type: 
  Country: None (occurrence: None)
  Receive Date: 20120412
  Receipt Date: 20120329
  Transmission Date: 20120825
  Serious: Yes (Death, Hospitalization)
  Sender: FDA-Public Use
  Company Number: JP-ROCHE-1001246

PATIENT
  Sex: Female
  Weight: 44 kg

DRUGS (8)
  1. MYONAL [Concomitant]
     Indication: MUSCLE TIGHTNESS
     Route: 048
     Dates: start: 20070606
  2. SELBEX [Concomitant]
     Indication: PROPHYLAXIS
     Route: 048
  3. ACTEMRA [Suspect]
     Indication: RHEUMATOID ARTHRITIS
     Route: 041
     Dates: start: 20100113, end: 20110602
  4. LOXONIN [Concomitant]
     Indication: RHEUMATOID ARTHRITIS
     Route: 048
     Dates: end: 20100407
  5. BREDININ [Concomitant]
     Indication: RHEUMATOID ARTHRITIS
     Route: 048
  6. INFREE [Concomitant]
     Indication: RHEUMATOID ARTHRITIS
     Route: 048
  7. ISONIAZID [Concomitant]
     Indication: ANTIBIOTIC PROPHYLAXIS
     Route: 048
     Dates: start: 20091023, end: 20101020
  8. METHYCOBAL [Concomitant]
     Indication: NEUROPATHY PERIPHERAL
     Route: 048

REACTIONS (4)
  - MALIGNANT PERITONEAL NEOPLASM [None]
  - MALIGNANT ASCITES [None]
  - MALIGNANT PLEURAL EFFUSION [None]
  - OVARIAN CANCER [None]
